FAERS Safety Report 24424326 (Version 1)
Quarter: 2024Q4

REPORT INFORMATION
  Report Type: Spontaneous
  Country: GB (occurrence: GB)
  Receive Date: 20241010
  Receipt Date: 20241010
  Transmission Date: 20250115
  Serious: Yes (Other)
  Sender: GLAXOSMITHKLINE
  Company Number: None

PATIENT

DRUGS (18)
  1. FLUTICASONE FUROATE\VILANTEROL TRIFENATATE [Suspect]
     Active Substance: FLUTICASONE FUROATE\VILANTEROL TRIFENATATE
     Indication: Ill-defined disorder
     Dosage: UNK
     Route: 065
     Dates: start: 20240904
  2. POLYETHYLENE GLYCOL\POTASSIUM CHLORIDE\SODIUM BICARBONATE\SODIUM CHLOR [Concomitant]
     Active Substance: POLYETHYLENE GLYCOL\POTASSIUM CHLORIDE\SODIUM BICARBONATE\SODIUM CHLORIDE
     Indication: Ill-defined disorder
     Dosage: 1 DF, BID (TAKE ONE SACHET TWICE A DAY)
     Route: 065
     Dates: start: 20240729, end: 20240828
  3. COCODAMOL [Concomitant]
     Active Substance: ACETAMINOPHEN\CODEINE PHOSPHATE
     Indication: Ill-defined disorder
     Dosage: UNK UNK, QID (TAKE ONE OR TWO TABLETS FOUR TIMES A DAY AS NEEDED FOR PAIN)
     Route: 065
     Dates: start: 20240927
  4. COCODAMOL [Concomitant]
     Active Substance: ACETAMINOPHEN\CODEINE PHOSPHATE
     Indication: Pain
  5. Adcal [Concomitant]
     Indication: Ill-defined disorder
     Dosage: 2 DF, QD (TWO TO BE TAKEN IN THE AFTERNOON)
     Route: 065
     Dates: start: 20240216
  6. ASPIRIN [Concomitant]
     Active Substance: ASPIRIN
     Indication: Ill-defined disorder
     Dosage: 1 DF, QD(TAKE ONE TABLET DAILY IN THE MORNING)
     Route: 065
     Dates: start: 20240216
  7. BECLOMETHASONE DIPROPIONATE [Concomitant]
     Active Substance: BECLOMETHASONE DIPROPIONATE
     Indication: Ill-defined disorder
     Dosage: 1 DF, BID (USE ONE SPRAY IN EACH NOSTRIL TWICE A DAY)
     Route: 065
     Dates: start: 20240216
  8. CETIRIZINE [Concomitant]
     Active Substance: CETIRIZINE HYDROCHLORIDE
     Indication: Ill-defined disorder
     Dosage: 1 DF, QD (TAKE ONE DAILY)
     Route: 065
     Dates: start: 20240216
  9. BECLOMETHASONE DIPROPIONATE [Concomitant]
     Active Substance: BECLOMETHASONE DIPROPIONATE
     Indication: Ill-defined disorder
     Dosage: 2 DF, BID (INHALE TWO DOSES TWICE A DAY)
     Route: 055
     Dates: start: 20240216
  10. EPLERENONE [Concomitant]
     Active Substance: EPLERENONE
     Indication: Ill-defined disorder
     Dosage: 1 DF, QD (TAKE ONE TABLET DAILY IN THE MORNING)
     Route: 065
     Dates: start: 20240216, end: 20240729
  11. FUROSEMIDE [Concomitant]
     Active Substance: FUROSEMIDE
     Indication: Ill-defined disorder
     Dosage: UNK (TWO TO BE TAKEN EACH MORNING  AND TWO TO BE TAK...)
     Route: 065
     Dates: start: 20240216
  12. NITROGLYCERIN [Concomitant]
     Active Substance: NITROGLYCERIN
     Indication: Ill-defined disorder
     Dosage: UNK (USE ONE OR TWO SPRAYS UNDER THE TONGUE)
     Route: 065
     Dates: start: 20240216
  13. ISOSORBIDE MONONITRATE [Concomitant]
     Active Substance: ISOSORBIDE MONONITRATE
     Indication: Ill-defined disorder
     Dosage: 1 DF, QD (TAKE ONE EACH MORNING)
     Route: 065
     Dates: start: 20240216
  14. LETROZOLE [Concomitant]
     Active Substance: LETROZOLE
     Indication: Ill-defined disorder
     Dosage: 1 DF, QD (TAKE ONE TABLET ONCE A DAY)
     Route: 065
     Dates: start: 20240216
  15. SIMVASTATIN [Concomitant]
     Active Substance: SIMVASTATIN
     Indication: Ill-defined disorder
     Dosage: 1 DF, QD (TAKE ONE TABLET EACH NIGHT)
     Route: 065
     Dates: start: 20240216
  16. SOLIFENACIN [Concomitant]
     Active Substance: SOLIFENACIN
     Indication: Ill-defined disorder
     Dosage: 1 DF, QD (TAKE ONE TABLET DAILY IN THE MORNING)
     Route: 065
     Dates: start: 20240216
  17. VENTOLIN [Concomitant]
     Active Substance: ALBUTEROL SULFATE
     Indication: Ill-defined disorder
     Dosage: 1 DF (INHALE 1 DOSE AS NEEDED)
     Route: 055
     Dates: start: 20240216
  18. VIAZEM [Concomitant]
     Indication: Ill-defined disorder
     Dosage: 1 DF, QD (ONE DAILY)
     Route: 065
     Dates: start: 20240216

REACTIONS (2)
  - Chest discomfort [Recovered/Resolved]
  - Dyspnoea [Recovered/Resolved]

NARRATIVE: CASE EVENT DATE: 20240904
